FAERS Safety Report 16795903 (Version 2)
Quarter: 2019Q3

REPORT INFORMATION
  Report Type: Report from Study
  Country: AR (occurrence: AR)
  Receive Date: 20190911
  Receipt Date: 20190920
  Transmission Date: 20191005
  Serious: Yes (Other)
  Sender: FDA-Public Use
  Company Number: AR-JNJFOC-20190907540

PATIENT
  Age: 58 Year
  Sex: Male

DRUGS (14)
  1. RACORVAL D [Concomitant]
     Indication: HYPERTENSION
     Dosage: UNK
  2. CILOSTAZOL. [Concomitant]
     Active Substance: CILOSTAZOL
     Dosage: 100 MG
  3. LANOXIN [Concomitant]
     Active Substance: DIGOXIN
     Dosage: UNK
  4. CLONAGIN [Concomitant]
     Dosage: 2 MG
  5. RIVAROXABAN [Suspect]
     Active Substance: RIVAROXABAN
     Indication: ATRIAL FIBRILLATION
     Route: 048
  6. PANTOMETYL [Concomitant]
     Dosage: 40 MG
  7. PLIDEX [DIAZEPAM;ISOPROPAMIDE] [Concomitant]
     Dosage: UNK
  8. FLUTIVENT [Concomitant]
     Dosage: UNK
  9. BISOPROLOL [Concomitant]
     Active Substance: BISOPROLOL
     Dosage: 10 MG
  10. REDUPROST [Concomitant]
     Dosage: 0.4 MG
  11. ISOPTINO [Concomitant]
     Dosage: UNK
  12. NIMODILAT PLUS [Concomitant]
     Dosage: 100 MG
  13. RIVAROXABAN [Suspect]
     Active Substance: RIVAROXABAN
     Route: 048
  14. NEURISTAN [Concomitant]
     Dosage: 75 MG

REACTIONS (3)
  - Cerebrovascular accident [Unknown]
  - Transient ischaemic attack [Unknown]
  - Product prescribing issue [Unknown]

NARRATIVE: CASE EVENT DATE: 201805
